FAERS Safety Report 21758318 (Version 1)
Quarter: 2022Q4

REPORT INFORMATION
  Report Type: Spontaneous
  Country: US (occurrence: US)
  Receive Date: 20221221
  Receipt Date: 20221221
  Transmission Date: 20230113
  Serious: Yes (Other)
  Sender: FDA-Public Use
  Company Number: US-AMGEN-USASP2022215642

PATIENT

DRUGS (9)
  1. INFLIXIMAB [Suspect]
     Active Substance: INFLIXIMAB
     Indication: Retinal vasculitis
     Dosage: 5 MILLIGRAM/KG
     Route: 040
  2. INFLIXIMAB [Suspect]
     Active Substance: INFLIXIMAB
     Dosage: 7.5 MILLIGRAM/KG
     Route: 040
  3. INFLIXIMAB [Suspect]
     Active Substance: INFLIXIMAB
     Dosage: 10 MILLIGRAM/KG
     Route: 040
  4. ADALIMUMAB [Concomitant]
     Active Substance: ADALIMUMAB
     Indication: Product used for unknown indication
     Route: 065
  5. AZATHIOPRINE [Concomitant]
     Active Substance: AZATHIOPRINE
     Indication: Product used for unknown indication
     Dosage: UNK
     Route: 065
  6. METHOTREXATE [Concomitant]
     Active Substance: METHOTREXATE
     Indication: Product used for unknown indication
     Route: 065
  7. MYCOPHENOLATE MOFETIL [Concomitant]
     Active Substance: MYCOPHENOLATE MOFETIL
     Indication: Product used for unknown indication
     Route: 065
  8. FILGOTINIB [Concomitant]
     Active Substance: FILGOTINIB
     Indication: Product used for unknown indication
     Route: 065
  9. CORTICOTROPIN [Concomitant]
     Active Substance: CORTICOTROPIN
     Indication: Product used for unknown indication
     Route: 065

REACTIONS (3)
  - Retinal vasculitis [Unknown]
  - Drug effective for unapproved indication [Unknown]
  - Off label use [Unknown]
